FAERS Safety Report 20029578 (Version 2)
Quarter: 2021Q4

REPORT INFORMATION
  Report Type: Spontaneous
  Country: ES (occurrence: ES)
  Receive Date: 20211103
  Receipt Date: 20211115
  Transmission Date: 20220304
  Serious: Yes (Death, Other)
  Sender: FDA-Public Use
  Company Number: ES-AMGEN-ESPSP2021167863

PATIENT

DRUGS (2)
  1. PANITUMUMAB [Suspect]
     Active Substance: PANITUMUMAB
     Indication: Off label use
     Dosage: 9 MILLIGRAM/KILOGRAM, Q3WK
     Route: 065
  2. PANITUMUMAB [Suspect]
     Active Substance: PANITUMUMAB
     Indication: Squamous cell carcinoma of head and neck

REACTIONS (8)
  - Death [Fatal]
  - Head and neck cancer [Fatal]
  - Gastric cancer [Unknown]
  - Lung neoplasm malignant [Unknown]
  - Therapy partial responder [Unknown]
  - Tongue neoplasm [Unknown]
  - Renal neoplasm [Unknown]
  - Off label use [Unknown]
